FAERS Safety Report 15911202 (Version 1)
Quarter: 2019Q1

REPORT INFORMATION
  Report Type: Spontaneous
  Country: US (occurrence: US)
  Receive Date: 20190204
  Receipt Date: 20190204
  Transmission Date: 20190417
  Serious: No
  Sender: FDA-Public Use
  Company Number: US-ABBVIE-18K-163-2306787-00

PATIENT
  Sex: Male

DRUGS (3)
  1. HUMIRA [Suspect]
     Active Substance: ADALIMUMAB
     Indication: PSORIASIS
     Dosage: STARTING DOSE 1
     Route: 058
     Dates: start: 20180306, end: 20180306
  2. HUMIRA [Suspect]
     Active Substance: ADALIMUMAB
     Dosage: STARTING DOSE 2
     Route: 058
     Dates: start: 20180320, end: 20180320
  3. HUMIRA [Suspect]
     Active Substance: ADALIMUMAB
     Route: 058
     Dates: start: 20180328

REACTIONS (2)
  - Chromaturia [Not Recovered/Not Resolved]
  - Device issue [Unknown]

NARRATIVE: CASE EVENT DATE: 201803
